FAERS Safety Report 4491192-7 (Version None)
Quarter: 2004Q3

REPORT INFORMATION
  Report Type: 
  Country: None (occurrence: None)
  Receive Date: 20040927
  Receipt Date: 20040804
  Transmission Date: 20050211
  Serious: No
  Sender: FDA-Public Use
  Company Number: USA040874471

PATIENT
  Age: 34 Year
  Sex: Male
  Weight: 65 kg

DRUGS (4)
  1. STRATTERA [Suspect]
     Indication: ATTENTION DEFICIT/HYPERACTIVITY DISORDER
     Dosage: 120 MG/1 DAY
  2. CENTRUM [Concomitant]
  3. VITAMIN E [Concomitant]
  4. FISH OIL [Concomitant]

REACTIONS (9)
  - ANXIETY [None]
  - DISTURBANCE IN ATTENTION [None]
  - EMOTIONAL DISTRESS [None]
  - LETHARGY [None]
  - NERVOUSNESS [None]
  - PRESCRIBED OVERDOSE [None]
  - RAPID EYE MOVEMENTS SLEEP ABNORMAL [None]
  - ROAD TRAFFIC ACCIDENT [None]
  - SKIN HYPERPIGMENTATION [None]
